FAERS Safety Report 4743410-5 (Version None)
Quarter: 2005Q3

REPORT INFORMATION
  Report Type: 
  Country: None (occurrence: None)
  Receive Date: 20050809
  Receipt Date: 20050728
  Transmission Date: 20060218
  Serious: Yes (Other)
  Sender: FDA-Public Use
  Company Number: 2005108397

PATIENT
  Age: 73 Year
  Sex: Female
  Weight: 81.6475 kg

DRUGS (5)
  1. TIKOSYN [Suspect]
     Indication: ATRIAL FIBRILLATION
     Dosage: 1000 MG (500 MG, BID INTERVAL:  EVERY DAY), ORAL
     Route: 048
  2. HYDROXYCHLOROQUINE SULFATE [Concomitant]
  3. ATENOLOL [Concomitant]
  4. ACETYLSALICYLIC ACID SRT [Concomitant]
  5. LEVOXYL [Concomitant]

REACTIONS (10)
  - CARDIAC FLUTTER [None]
  - COLONIC POLYP [None]
  - DIZZINESS [None]
  - ELECTROCARDIOGRAM ABNORMAL [None]
  - GASTROINTESTINAL DISORDER [None]
  - HEART RATE INCREASED [None]
  - HEART RATE IRREGULAR [None]
  - IATROGENIC INJURY [None]
  - LIVER FUNCTION TEST ABNORMAL [None]
  - PROCEDURAL COMPLICATION [None]
